FAERS Safety Report 5655954-2 (Version None)
Quarter: 2008Q1

REPORT INFORMATION
  Report Type: 
  Country: None (occurrence: None)
  Receive Date: 20080307
  Receipt Date: 20080304
  Transmission Date: 20080703
  Serious: Yes (Life-Threatening, Disabling)
  Sender: FDA-Public Use
  Company Number: PE-BOEHRINGER INGELHEIM GMBH, GERMANY-2008-BP-03221PB

PATIENT
  Sex: Female

DRUGS (1)
  1. MICARDIS [Suspect]
     Indication: HYPERTENSION
     Route: 048
     Dates: start: 20080227, end: 20080227

REACTIONS (1)
  - HYPERTENSIVE CRISIS [None]
